FAERS Safety Report 10053233 (Version 1)
Quarter: 2014Q2

REPORT INFORMATION
  Report Type: Spontaneous
  Country: JP (occurrence: JP)
  Receive Date: 20140402
  Receipt Date: 20140402
  Transmission Date: 20141212
  Serious: Yes (Other)
  Sender: FDA-Public Use
  Company Number: JP-GLAXOSMITHKLINE-B0981278A

PATIENT
  Age: 6 Decade
  Sex: Female

DRUGS (1)
  1. SERETIDE (50MCG/100MCG) [Suspect]
     Indication: PRODUCT USED FOR UNKNOWN INDICATION
     Dosage: 100MCG TWICE PER DAY
     Route: 055

REACTIONS (1)
  - Pneumonia [Recovered/Resolved]
